FAERS Safety Report 6906642-3 (Version None)
Quarter: 2010Q3

REPORT INFORMATION
  Report Type: 
  Country: None (occurrence: None)
  Receive Date: 20100804
  Receipt Date: 20100726
  Transmission Date: 20110219
  Serious: Yes (Other)
  Sender: FDA-Public Use
  Company Number: US-PFIZER INC-2010094318

PATIENT
  Sex: Female
  Weight: 147.39 kg

DRUGS (22)
  1. NICOTROL [Suspect]
     Indication: SMOKING CESSATION THERAPY
     Dosage: 1 MG, 4X/DAY
     Route: 045
     Dates: start: 20100623
  2. ULTRAM [Concomitant]
     Indication: PAIN
     Dosage: 50 MG, 4X/DAY
     Route: 048
  3. IMITREX [Concomitant]
     Indication: MIGRAINE
     Dosage: 100 MG, AS NEEDED
     Route: 048
  4. TENORMIN [Concomitant]
     Indication: WOLFF-PARKINSON-WHITE SYNDROME
     Dosage: 50 MG, 1X/DAY
     Route: 048
  5. DICYCLOMINE [Concomitant]
     Indication: WOLFF-PARKINSON-WHITE SYNDROME
     Dosage: 20 MG, 4X/DAY
     Route: 048
  6. TRAZODONE [Concomitant]
     Indication: INSOMNIA
     Dosage: 300 MG, 1X/DAY
     Route: 048
  7. LYRICA [Concomitant]
     Indication: FIBROMYALGIA
     Dosage: 175 MG, 1X/DAY
     Route: 048
  8. PEPCID [Concomitant]
     Indication: GASTROOESOPHAGEAL REFLUX DISEASE
     Dosage: 20 MG, 2X/DAY
     Route: 048
  9. FIORICET W/ CODEINE [Concomitant]
     Indication: TENSION HEADACHE
     Dosage: UNK MG, 2X/DAY
     Route: 048
  10. CYMBALTA [Concomitant]
     Indication: DEPRESSION
     Dosage: 120 MG, 1X/DAY
     Route: 048
  11. KLONOPIN [Concomitant]
     Indication: ANXIETY
     Dosage: 1 MG, 1X/DAY
     Route: 048
  12. CLONIDINE [Concomitant]
     Indication: ARTHRITIS
     Dosage: 0.1 MG, 2X/DAY
     Route: 048
  13. NEURONTIN [Concomitant]
     Indication: BIPOLAR DISORDER
     Dosage: UNK MG, 3X/DAY
     Route: 048
  14. TYLENOL W/ CODEINE [Concomitant]
     Indication: PAIN
     Dosage: UNK MG, 2X/DAY
  15. LEVAQUIN [Concomitant]
     Indication: BREAST CYST
     Dosage: 500 MG, 1X/DAY
  16. LEVAQUIN [Concomitant]
     Indication: CYST
  17. BACLOFEN [Concomitant]
     Indication: MUSCLE RELAXANT THERAPY
     Dosage: 10 MG, 3X/DAY
     Route: 048
  18. AMBIEN [Concomitant]
     Indication: INSOMNIA
     Dosage: 10 MG, 1X/DAY
     Route: 048
  19. SALAGEN [Concomitant]
     Indication: SJOGREN'S SYNDROME
     Dosage: 7.5 MG, 3X/DAY
     Route: 048
  20. COMPAZINE [Concomitant]
     Indication: ANXIETY
     Dosage: 5 MG, 4X/DAY
     Route: 048
  21. PREVACID [Concomitant]
     Indication: GASTROOESOPHAGEAL REFLUX DISEASE
     Dosage: 30 MG, 2X/DAY
     Route: 048
  22. CICLOSPORIN [Concomitant]
     Indication: SJOGREN'S SYNDROME
     Dosage: UNK

REACTIONS (1)
  - VASCULITIC RASH [None]
